FAERS Safety Report 4870950-0 (Version None)
Quarter: 2005Q4

REPORT INFORMATION
  Report Type: 
  Country: None (occurrence: None)
  Receive Date: 20051229
  Receipt Date: 20051220
  Transmission Date: 20060501
  Serious: Yes (Life-Threatening, Hospitalization)
  Sender: FDA-Public Use
  Company Number: 2005170813

PATIENT
  Age: 43 Year
  Sex: Male

DRUGS (2)
  1. NIFEDIPINE [Suspect]
     Indication: ILL-DEFINED DISORDER
     Dosage: 30 MG (DAILY)
     Dates: start: 20030227
  2. METOPROLOL (METOPROLOL) [Suspect]
     Indication: ILL-DEFINED DISORDER
     Dosage: 47.5 MG (DAILY)

REACTIONS (4)
  - ABDOMINAL PAIN [None]
  - ABNORMAL BEHAVIOUR [None]
  - MALAISE [None]
  - NAUSEA [None]
